FAERS Safety Report 9610997 (Version 1)
Quarter: 2013Q4

REPORT INFORMATION
  Report Type: Spontaneous
  Country: US (occurrence: US)
  Receive Date: 20131009
  Receipt Date: 20131009
  Transmission Date: 20140711
  Serious: Yes (Other)
  Sender: FDA-Public Use
  Company Number: US-GLAXOSMITHKLINE-A1044627A

PATIENT
  Age: 46 Year
  Sex: Female
  Weight: 81.8 kg

DRUGS (5)
  1. ZOFRAN [Suspect]
     Indication: NAUSEA
  2. PRILOSEC [Suspect]
     Indication: IRRITABLE BOWEL SYNDROME
     Dates: end: 201309
  3. PENTASA [Suspect]
     Indication: IRRITABLE BOWEL SYNDROME
  4. XANAX [Suspect]
     Indication: ANXIETY
  5. ROBINUL [Suspect]
     Indication: IRRITABLE BOWEL SYNDROME
     Dates: start: 2013, end: 201309

REACTIONS (13)
  - Aphagia [Not Recovered/Not Resolved]
  - Chills [Not Recovered/Not Resolved]
  - Tremor [Not Recovered/Not Resolved]
  - Crying [Not Recovered/Not Resolved]
  - Vomiting [Not Recovered/Not Resolved]
  - Pallor [Not Recovered/Not Resolved]
  - Influenza like illness [Not Recovered/Not Resolved]
  - Headache [Not Recovered/Not Resolved]
  - Hyperhidrosis [Not Recovered/Not Resolved]
  - Panic attack [Not Recovered/Not Resolved]
  - Anxiety [Not Recovered/Not Resolved]
  - Drug administration error [Unknown]
  - Product quality issue [Unknown]
